FAERS Safety Report 5157384-9 (Version None)
Quarter: 2006Q4

REPORT INFORMATION
  Report Type: 
  Country: None (occurrence: None)
  Receive Date: 20061127
  Receipt Date: 20050930
  Transmission Date: 20070319
  Serious: Yes (Hospitalization)
  Sender: FDA-Public Use
  Company Number: US-ROCHE-419660

PATIENT
  Age: 60 Year
  Sex: Female

DRUGS (8)
  1. CAPECITABINE [Suspect]
     Indication: BREAST CANCER
     Route: 048
     Dates: start: 20050504, end: 20050505
  2. CAPECITABINE [Suspect]
     Route: 048
     Dates: start: 20050510, end: 20050517
  3. GLICLAZIDE [Suspect]
     Route: 048
     Dates: start: 20020313
  4. METFORMIN HYDROCHLORIDE [Suspect]
     Route: 048
     Dates: start: 20050313, end: 20050506
  5. MORPHINE [Concomitant]
     Dates: start: 20050329
  6. PERINDOPRIL ERBUMINE [Concomitant]
     Dates: start: 20040115
  7. SIMVASTATIN [Concomitant]
     Dates: start: 20030220
  8. FENOFIBRATE [Concomitant]
     Dates: start: 20041021

REACTIONS (5)
  - ANAEMIA [None]
  - GENERALISED OEDEMA [None]
  - HAEMATURIA [None]
  - HYPOGLYCAEMIA [None]
  - RENAL IMPAIRMENT [None]
